FAERS Safety Report 10221407 (Version 3)
Quarter: 2014Q4

REPORT INFORMATION
  Report Type: Report from Study
  Country: DE (occurrence: DE)
  Receive Date: 20140606
  Receipt Date: 20141111
  Transmission Date: 20150528
  Serious: Yes (Hospitalization)
  Sender: FDA-Public Use
  Company Number: DE-BEH-2014042967

PATIENT
  Age: 78 Year
  Sex: Female
  Weight: 56 kg

DRUGS (28)
  1. PRIVIGEN [Suspect]
     Active Substance: HUMAN IMMUNOGLOBULIN G
     Dates: start: 20140508, end: 20140508
  2. TORASEMIDE [Concomitant]
     Active Substance: TORSEMIDE
  3. METOPROLOL [Concomitant]
     Active Substance: METOPROLOL
  4. [SALBUTAMOL]/ATROVENT [Concomitant]
  5. ACTRAPID [Concomitant]
     Active Substance: INSULIN HUMAN
  6. PRIVIGEN [Suspect]
     Active Substance: HUMAN IMMUNOGLOBULIN G
     Indication: INFECTION
     Dosage: INFUSION RATE MIN. 0.8 ML/MIN, MAX. 6 ML/MIN
     Route: 042
     Dates: start: 20140416, end: 20140416
  7. PRIVIGEN [Suspect]
     Active Substance: HUMAN IMMUNOGLOBULIN G
     Dates: start: 20140508, end: 20140508
  8. PRIVIGEN [Suspect]
     Active Substance: HUMAN IMMUNOGLOBULIN G
     Dates: start: 20140618, end: 20140618
  9. RAMIPRIL. [Concomitant]
     Active Substance: RAMIPRIL
  10. PREDNISOLUT [Concomitant]
     Active Substance: PREDNISOLONE
     Dates: start: 20140416, end: 20140416
  11. PRIVIGEN [Suspect]
     Active Substance: HUMAN IMMUNOGLOBULIN G
     Indication: SECONDARY IMMUNODEFICIENCY
     Dosage: MAX. INFUSION RATE 6 ML/MIN
     Route: 042
     Dates: start: 20140317, end: 20140317
  12. PRIVIGEN [Suspect]
     Active Substance: HUMAN IMMUNOGLOBULIN G
     Dosage: INFUSION RATE MIN. 0.8 ML/MIN, MAX. 6 ML/MIN
     Route: 042
     Dates: start: 20140508, end: 20140508
  13. SIMVASTATIN. [Concomitant]
     Active Substance: SIMVASTATIN
  14. AMARYL [Concomitant]
     Active Substance: GLIMEPIRIDE
  15. PREDNISOLUT [Concomitant]
     Active Substance: PREDNISOLONE
     Dates: start: 20140618, end: 20140618
  16. PRIVIGEN [Suspect]
     Active Substance: HUMAN IMMUNOGLOBULIN G
     Dosage: INFUSION RATE MIN. 0.8 ML/MIN, MAX. 6 ML/MIN
     Route: 042
     Dates: start: 20140618, end: 20140618
  17. ORAL ANTIDIABETICS [Concomitant]
     Active Substance: UNSPECIFIED INGREDIENT
  18. SALBUTAMOL[/ATROVENT] [Concomitant]
  19. PREDNISOLUT [Concomitant]
     Active Substance: PREDNISOLONE
     Indication: PREMEDICATION
     Dates: start: 20140317, end: 20140317
  20. PRIVIGEN [Suspect]
     Active Substance: HUMAN IMMUNOGLOBULIN G
     Dates: start: 20140416, end: 20140416
  21. PRIVIGEN [Suspect]
     Active Substance: HUMAN IMMUNOGLOBULIN G
     Indication: CHRONIC LYMPHOCYTIC LEUKAEMIA
     Dates: start: 20140416, end: 20140416
  22. THIAMAZOL [Concomitant]
     Active Substance: METHIMAZOLE
  23. PLATELET AGGREGATION INHIBITORS [Concomitant]
     Active Substance: UNSPECIFIED INGREDIENT
  24. HCT [Concomitant]
     Active Substance: HYDROCHLOROTHIAZIDE
  25. ASPIRIN. [Concomitant]
     Active Substance: ASPIRIN
  26. PREDNISOLUT [Concomitant]
     Active Substance: PREDNISOLONE
     Dates: start: 20140508, end: 20140508
  27. PRIVIGEN [Suspect]
     Active Substance: HUMAN IMMUNOGLOBULIN G
     Dates: start: 20140618, end: 20140618
  28. METFORMIN [Concomitant]
     Active Substance: METFORMIN HYDROCHLORIDE

REACTIONS (3)
  - Sputum purulent [Recovered/Resolved]
  - Lung infiltration [Recovering/Resolving]
  - Cough [Recovered/Resolved]

NARRATIVE: CASE EVENT DATE: 201405
